FAERS Safety Report 10038118 (Version 2)
Quarter: 2014Q2

REPORT INFORMATION
  Report Type: Spontaneous
  Country: MX (occurrence: MX)
  Receive Date: 20140326
  Receipt Date: 20140401
  Transmission Date: 20141212
  Serious: Yes (Other)
  Sender: FDA-Public Use
  Company Number: MX-UCBSA-115501

PATIENT
  Age: 57 Year
  Sex: Female
  Weight: 68 kg

DRUGS (3)
  1. CIMZIA [Suspect]
     Indication: RHEUMATOID ARTHRITIS
     Route: 058
     Dates: start: 20130521, end: 201402
  2. FOLIC ACID [Concomitant]
  3. ADALIMUMAB [Concomitant]
     Dosage: WITH REMMISSION
     Route: 058
     Dates: start: 2006

REACTIONS (2)
  - Tuberculosis [Not Recovered/Not Resolved]
  - Proteus infection [Recovered/Resolved]
